FAERS Safety Report 5139940-7 (Version None)
Quarter: 2006Q4

REPORT INFORMATION
  Report Type: 
  Country: None (occurrence: None)
  Receive Date: 20061031
  Receipt Date: 20060302
  Transmission Date: 20070319
  Serious: Yes (Hospitalization, Other)
  Sender: FDA-Public Use
  Company Number: US-ELI_LILLY_AND_COMPANY-US200603002213

PATIENT
  Age: 42 Year
  Sex: Male
  Weight: 113.38 kg

DRUGS (2)
  1. ZYPREXA [Suspect]
     Indication: BIPOLAR I DISORDER
     Dosage: 5 MG, UNK
     Dates: start: 20000101, end: 20030101
  2. ZYPREXA [Suspect]
     Dosage: 25 MG, UNK

REACTIONS (17)
  - BLOOD CHOLESTEROL [None]
  - BLOOD CHOLESTEROL ABNORMAL [None]
  - BLOOD TRIGLYCERIDES [None]
  - BLOOD TRIGLYCERIDES INCREASED [None]
  - DIABETES MELLITUS [None]
  - DIABETIC KETOACIDOSIS [None]
  - HEPATITIS VIRAL [None]
  - HUNGER [None]
  - HYPERGLYCAEMIC HYPEROSMOLAR NONKETOTIC SYNDROME [None]
  - HYPERINSULINISM [None]
  - INCORRECT DOSE ADMINISTERED [None]
  - LACTIC ACIDOSIS [None]
  - METABOLIC ACIDOSIS [None]
  - METABOLIC DISORDER [None]
  - PRESCRIBED OVERDOSE [None]
  - VISION BLURRED [None]
  - WEIGHT DECREASED [None]
